FAERS Safety Report 25162884 (Version 1)
Quarter: 2025Q2

REPORT INFORMATION
  Report Type: Spontaneous
  Country: FR (occurrence: FR)
  Receive Date: 20250404
  Receipt Date: 20250404
  Transmission Date: 20250716
  Serious: Yes (Death, Other)
  Sender: ELI LILLY AND CO
  Company Number: FR-JNJFOC-20250369162

PATIENT
  Age: 70 Year
  Sex: Female
  Weight: 70 kg

DRUGS (7)
  1. PEMETREXED [Suspect]
     Active Substance: PEMETREXED
     Indication: Non-small cell lung cancer metastatic
     Route: 050
     Dates: start: 20250225, end: 20250311
  2. PEMETREXED [Suspect]
     Active Substance: PEMETREXED
     Route: 050
     Dates: end: 20250107
  3. CARBOPLATIN [Suspect]
     Active Substance: CARBOPLATIN
     Indication: Non-small cell lung cancer metastatic
     Route: 050
     Dates: end: 20250224
  4. CARBOPLATIN [Suspect]
     Active Substance: CARBOPLATIN
     Route: 050
     Dates: start: 20250225
  5. CARBOPLATIN [Suspect]
     Active Substance: CARBOPLATIN
     Route: 050
     Dates: end: 20240211
  6. AMIVANTAMAB [Suspect]
     Active Substance: AMIVANTAMAB
     Indication: Non-small cell lung cancer metastatic
     Route: 065
     Dates: end: 20250224
  7. AMIVANTAMAB [Suspect]
     Active Substance: AMIVANTAMAB
     Route: 065
     Dates: start: 20250225, end: 20250225

REACTIONS (2)
  - Malignant neoplasm progression [Fatal]
  - Skin toxicity [Unknown]
